FAERS Safety Report 8376243-1 (Version None)
Quarter: 2012Q2

REPORT INFORMATION
  Report Type: 
  Country: None (occurrence: None)
  Receive Date: 20120517
  Receipt Date: 20120508
  Transmission Date: 20120825
  Serious: Yes (Other)
  Sender: FDA-Public Use
  Company Number: 2012-001766

PATIENT
  Age: 68 Year
  Sex: Female
  Weight: 50 kg

DRUGS (9)
  1. ADALIMUMAB (ADALIMUMAB) [Concomitant]
  2. ADCAL (CALCIUM CARBONATE) [Concomitant]
  3. ACTONEL [Suspect]
     Indication: OSTEOPOROSIS
     Dosage: 35 MG, ONCE WEEKLY, ORAL
     Route: 048
     Dates: start: 20040317
  4. ATENOLOL [Concomitant]
  5. METHOTREXATE [Concomitant]
  6. BENDROFLUMETHIAZIDE (BENDROFLUMETHIAZIDE) [Concomitant]
  7. ACETAMINOPHEN [Concomitant]
  8. FOLIC ACID [Concomitant]
  9. OMEPRAZOLE [Concomitant]

REACTIONS (8)
  - BASAL CELL CARCINOMA [None]
  - EAR PAIN [None]
  - HUMERUS FRACTURE [None]
  - PAIN IN JAW [None]
  - GINGIVAL PAIN [None]
  - OSTEONECROSIS OF JAW [None]
  - FACIAL PAIN [None]
  - LOOSE TOOTH [None]
